FAERS Safety Report 8573748-5 (Version None)
Quarter: 2012Q3

REPORT INFORMATION
  Report Type: 
  Country: None (occurrence: None)
  Receive Date: 20120806
  Receipt Date: 20120731
  Transmission Date: 20120928
  Serious: Yes (Death)
  Sender: FDA-Public Use
  Company Number: US-GLAXOSMITHKLINE-A0988362A

PATIENT
  Age: 78 Year
  Sex: Male

DRUGS (4)
  1. VOTRIENT [Suspect]
     Indication: MALIGNANT SOFT TISSUE NEOPLASM
     Dosage: 800MG PER DAY
     Route: 048
     Dates: start: 20120501, end: 20120701
  2. AMOXICILLIN [Concomitant]
  3. NEXIUM [Concomitant]
  4. ZYMAXID [Concomitant]

REACTIONS (1)
  - DEATH [None]
